FAERS Safety Report 7641004-5 (Version None)
Quarter: 2011Q3

REPORT INFORMATION
  Report Type: 
  Country: None (occurrence: None)
  Receive Date: 20110727
  Receipt Date: 20110727
  Transmission Date: 20111222
  Serious: Yes (Life-Threatening, Hospitalization, Disabling)
  Sender: FDA-Public Use
  Company Number: None

PATIENT
  Age: 47 Year
  Sex: Male
  Weight: 172.3669 kg

DRUGS (1)
  1. HUMIRA [Suspect]
     Dosage: BI-MTHY INS LAST DOSE BEEN TAKING APX 2YRS
     Dates: start: 20110501

REACTIONS (3)
  - RESPIRATORY ARREST [None]
  - LIVER DISORDER [None]
  - HAEMORRHAGE [None]
